FAERS Safety Report 8354592-0 (Version None)
Quarter: 2012Q2

REPORT INFORMATION
  Report Type: 
  Country: None (occurrence: None)
  Receive Date: 20120511
  Receipt Date: 20120508
  Transmission Date: 20120825
  Serious: Yes (Life-Threatening, Hospitalization, Disabling)
  Sender: FDA-Public Use
  Company Number: US-MERCK-1103USA00415

PATIENT
  Age: 61 Year
  Sex: Female

DRUGS (9)
  1. MULTI-VITAMINS [Concomitant]
     Route: 065
  2. PLAVIX [Concomitant]
     Route: 065
  3. METOPROLOL [Concomitant]
     Route: 065
  4. PERCOCET [Concomitant]
     Route: 065
  5. JANUVIA [Suspect]
     Route: 048
     Dates: start: 20100501, end: 20100901
  6. METFORMIN [Concomitant]
     Route: 065
  7. LIPITOR [Concomitant]
     Route: 065
  8. ASPIRIN [Concomitant]
     Route: 065
  9. EFFEXOR [Concomitant]
     Route: 065

REACTIONS (2)
  - HEPATITIS TOXIC [None]
  - DIABETES MELLITUS [None]
